FAERS Safety Report 16659836 (Version 1)
Quarter: 2019Q3

REPORT INFORMATION
  Report Type: Spontaneous
  Country: TR (occurrence: TR)
  Receive Date: 20190802
  Receipt Date: 20190802
  Transmission Date: 20191004
  Serious: Yes (Other)
  Sender: FDA-Public Use
  Company Number: TR-CELLTRION INC.-2019TR023281

PATIENT

DRUGS (2)
  1. INFLIXIMAB (UNKNOWN) [Suspect]
     Active Substance: INFLIXIMAB
     Indication: COLITIS ULCERATIVE
  2. ISONIAZID. [Concomitant]
     Active Substance: ISONIAZID
     Indication: PROPHYLACTIC CHEMOTHERAPY
     Dosage: 300MG DAILY FOR 9 MONTHS

REACTIONS (3)
  - Ascites [Unknown]
  - Tuberculosis [Unknown]
  - Extrapulmonary tuberculosis [Unknown]
